FAERS Safety Report 8818152 (Version 2)
Quarter: 2012Q4

REPORT INFORMATION
  Report Type: 
  Country: JP (occurrence: JP)
  Receive Date: 20121001
  Receipt Date: 20121019
  Transmission Date: 20130627
  Serious: Yes (Death, Hospitalization)
  Sender: FDA-Public Use
  Company Number: JP-ASTRAZENECA-2012SE74724

PATIENT
  Age: 71 Year
  Sex: Female

DRUGS (12)
  1. MEROPEN [Suspect]
     Indication: PNEUMONIA
     Route: 041
     Dates: start: 20120820, end: 20120828
  2. SULTAMICILLIN TOSILATE HYDRATE [Suspect]
     Indication: PNEUMONIA
     Route: 048
  3. AMLODIN OD [Concomitant]
     Indication: HYPERTENSION
     Dates: start: 20071205
  4. NU-LOTAN [Concomitant]
     Indication: HYPERTENSION
     Dates: start: 20071205
  5. PROTECADIN [Concomitant]
     Indication: PROPHYLAXIS AGAINST GASTROINTESTINAL ULCER
     Dates: start: 20071205
  6. KINEDAK [Concomitant]
     Indication: DIABETES MELLITUS
     Route: 048
     Dates: start: 20071205
  7. CARBOPLATIN [Concomitant]
     Indication: LUNG NEOPLASM MALIGNANT
     Dates: start: 20080805, end: 20080805
  8. PACLITAXEL [Concomitant]
     Indication: LUNG NEOPLASM MALIGNANT
     Dates: start: 20080805, end: 20080812
  9. DECADRON [Concomitant]
     Indication: LUNG NEOPLASM MALIGNANT
     Dates: start: 20080805, end: 20080812
  10. UNASYN-S [Concomitant]
     Indication: PNEUMONIA
     Dates: start: 20080819, end: 20080820
  11. HUMULIN R [Concomitant]
     Indication: DIABETES MELLITUS
     Dates: start: 20080819, end: 20080820
  12. LANTUS [Concomitant]
     Indication: DIABETES MELLITUS
     Route: 058
     Dates: start: 20080820, end: 20080821

REACTIONS (2)
  - Renal failure acute [Fatal]
  - Henoch-Schonlein purpura [Recovering/Resolving]
